FAERS Safety Report 9189596 (Version 1)
Quarter: 2013Q1

REPORT INFORMATION
  Report Type: Spontaneous
  Country: US (occurrence: US)
  Receive Date: 20130326
  Receipt Date: 20130326
  Transmission Date: 20140127
  Serious: Yes (Other)
  Sender: FDA-Public Use
  Company Number: US-JNJFOC-20130311194

PATIENT
  Age: 12 Year
  Sex: Male
  Weight: 45 kg

DRUGS (1)
  1. REMICADE [Suspect]
     Indication: CROHN^S DISEASE
     Route: 042

REACTIONS (5)
  - Chest discomfort [Recovered/Resolved]
  - Flushing [Recovered/Resolved]
  - Dyspnoea [Recovered/Resolved]
  - Oxygen saturation decreased [Recovered/Resolved]
  - Infusion related reaction [Recovered/Resolved]
